FAERS Safety Report 23289662 (Version 2)
Quarter: 2024Q3

REPORT INFORMATION
  Report Type: Report from Study
  Country: GB (occurrence: GB)
  Receive Date: 20231212
  Receipt Date: 20240923
  Transmission Date: 20241017
  Serious: Yes (Other)
  Sender: SANDOZ
  Company Number: GB-SANDOZ-SDZ2023GB050736

PATIENT
  Sex: Male

DRUGS (3)
  1. HYRIMOZ [Suspect]
     Active Substance: ADALIMUMAB-ADAZ
     Dosage: 40 MG EOW STRENGTH: 40MG/0.4 ML
     Route: 058
  2. HYRIMOZ [Suspect]
     Active Substance: ADALIMUMAB-ADAZ
     Indication: Ankylosing spondylitis
     Dosage: 40 MG EOW STRENGTH: 40MG/0.8 ML
     Route: 058
     Dates: start: 20231003
  3. ACETAMINOPHEN\CODEINE PHOSPHATE [Concomitant]
     Active Substance: ACETAMINOPHEN\CODEINE PHOSPHATE
     Indication: Product used for unknown indication
     Dosage: UNK
     Route: 065

REACTIONS (15)
  - Systemic lupus erythematosus [Unknown]
  - Lower respiratory tract infection [Unknown]
  - Balance disorder [Unknown]
  - Dry eye [Unknown]
  - Eye pain [Unknown]
  - Joint stiffness [Unknown]
  - Arthralgia [Unknown]
  - Malaise [Unknown]
  - Chronic fatigue syndrome [Unknown]
  - Cyst [Unknown]
  - Abdominal discomfort [Unknown]
  - Infection [Unknown]
  - Sinusitis [Unknown]
  - Pruritus [Unknown]
  - Fatigue [Unknown]
